FAERS Safety Report 4584112-8 (Version None)
Quarter: 2005Q1

REPORT INFORMATION
  Report Type: 
  Country: None (occurrence: None)
  Receive Date: 20050216
  Receipt Date: 20050205
  Transmission Date: 20050727
  Serious: Yes (Hospitalization)
  Sender: FDA-Public Use
  Company Number: FR-ROCHE-394864

PATIENT
  Age: 20 Year
  Sex: Female

DRUGS (1)
  1. ROCEPHIN [Suspect]
     Indication: MENINGITIS
     Route: 065

REACTIONS (8)
  - CARDIAC CIRRHOSIS [None]
  - CHOLESTASIS [None]
  - CYTOLYTIC HEPATITIS [None]
  - FACTOR V DEFICIENCY [None]
  - HEPATOMEGALY [None]
  - INFECTION [None]
  - PERICARDITIS [None]
  - PROTHROMBIN TIME PROLONGED [None]
